FAERS Safety Report 7105771-1 (Version None)
Quarter: 2010Q4

REPORT INFORMATION
  Report Type: 
  Country: None (occurrence: None)
  Receive Date: 20101110
  Receipt Date: 20101029
  Transmission Date: 20110411
  Serious: Yes (Other)
  Sender: FDA-Public Use
  Company Number: 2010P1002308

PATIENT
  Age: 81 Year
  Sex: Female
  Weight: 49.8957 kg

DRUGS (5)
  1. PREDNISONE [Suspect]
     Indication: POLYMYALGIA RHEUMATICA
     Dosage: 65-70 MG; QD; PO
     Route: 048
  2. VITAMIN D [Suspect]
     Dosage: 10,000 UNITS; QW; PO, 50,000 UNITS; X1; PO, 10,000-20,000 UNITS; QW; PO
     Route: 048
  3. HORMONE REPLACEMENT THERAPY [Concomitant]
  4. CALCIUM [Concomitant]
  5. CELEBREX [Concomitant]

REACTIONS (14)
  - ACCIDENT [None]
  - ADRENAL DISORDER [None]
  - BACK INJURY [None]
  - BLOOD CALCIUM INCREASED [None]
  - BONE DENSITY DECREASED [None]
  - DRUG INEFFECTIVE [None]
  - MALAISE [None]
  - MIGRAINE [None]
  - OSTEOPOROSIS [None]
  - PAIN [None]
  - PARATHYROID DISORDER [None]
  - SCOLIOSIS [None]
  - SPINAL FRACTURE [None]
  - THYROID NEOPLASM [None]
